FAERS Safety Report 4921320-8 (Version None)
Quarter: 2006Q1

REPORT INFORMATION
  Report Type: 
  Country: None (occurrence: None)
  Receive Date: 20060224
  Receipt Date: 20060215
  Transmission Date: 20060701
  Serious: Yes (Other)
  Sender: FDA-Public Use
  Company Number: PHFR2006GB00891

PATIENT
  Sex: Female

DRUGS (2)
  1. FEMARA [Suspect]
     Indication: BREAST CANCER
     Dosage: UNK, UNK
     Route: 065
     Dates: start: 20051001
  2. TAMOXIFEN CITRATE [Concomitant]
     Dosage: UNK, UNK
     Route: 065

REACTIONS (2)
  - CONDITION AGGRAVATED [None]
  - DYSTONIA [None]
